FAERS Safety Report 23055279 (Version 1)
Quarter: 2023Q4

REPORT INFORMATION
  Report Type: Spontaneous
  Country: US (occurrence: None)
  Receive Date: 20231011
  Receipt Date: 20231011
  Transmission Date: 20240110
  Serious: Yes (Other)
  Sender: FDA-Public Use
  Company Number: None

PATIENT
  Age: 49 Year
  Sex: Male
  Weight: 60 kg

DRUGS (21)
  1. EMEND (FOSAPREPITANT DIMEGLUMINE) [Suspect]
     Active Substance: FOSAPREPITANT DIMEGLUMINE
     Indication: Chemotherapy side effect prophylaxis
     Route: 040
     Dates: start: 20231010, end: 20231010
  2. acetaminophen (TYLENOL) 500 mg tablet [Concomitant]
  3. albuterol HFA (PROVENTIL HFA, VENTOLIN HFA, PROAIR HFA) 108 (90 Base) [Concomitant]
  4. ascorbic acid (VITAMascorbic acid (VITAMIN C) 1000IN C) 1000 MG tablet [Concomitant]
  5. cholecalciferol (VITAMIN D3) 50 MCG (2000 UT) capsule [Concomitant]
  6. Cyanocobalamin (VITAMIN B12 PO) [Concomitant]
  7. ferrous sulfate 325 (65 Fe) MG delayed release tablet [Concomitant]
  8. folic acid (FOLVITE) 1 mg tablet [Concomitant]
  9. lidocaine-prilocaine (EMLA) cream [Concomitant]
  10. loperamide (IMODIUM A-D) 2 MG tablet [Concomitant]
  11. Magnesium 250 MG tablet [Concomitant]
  12. methocarbamol (ROBAXIN) 750 mg tablet [Concomitant]
  13. naloxone (NARCAN) 4 mg/0.1 mL LIQD nasal spray [Concomitant]
  14. ondansetron (ZOFRAN-ODT) 4 mg disintegrating tablet [Concomitant]
  15. oxyCODONE (ROXICODONE) 5 mg immediate release tablet [Concomitant]
  16. polyethylene glycol (MIRALAX) 17 g packet [Concomitant]
  17. prochlorperazine (COMPAZINE) 10 mg tablet [Concomitant]
  18. fluorouracil (ADRUCIL) 4,000 mg in sodium chloride 0.9 % 96 mL chemo [Concomitant]
  19. LORazepam (ATIVAN) injection 0.5 mg [Concomitant]
  20. methylPREDNISolone sodium succinate (SOLU-Medrol) injection 125 mg [Concomitant]
  21. oxaliplatin (ELOXATIN) 140 mg in dextrose 5 % 298 mL chemo IVPB [Concomitant]

REACTIONS (4)
  - Flushing [None]
  - Infusion related reaction [None]
  - Dyspnoea [None]
  - Malaise [None]

NARRATIVE: CASE EVENT DATE: 20231010
